FAERS Safety Report 5871655-X (Version None)
Quarter: 2008Q3

REPORT INFORMATION
  Report Type: 
  Country: None (occurrence: None)
  Receive Date: 20080905
  Receipt Date: 20080821
  Transmission Date: 20090109
  Serious: Yes (Other)
  Sender: FDA-Public Use
  Company Number: CH-ELI_LILLY_AND_COMPANY-CH200808004304

PATIENT
  Age: 67 Year
  Sex: Female

DRUGS (11)
  1. FORTEO [Suspect]
     Indication: OSTEOPOROSIS
     Dosage: 20 UG, DAILY (1/D)
     Route: 058
     Dates: start: 20080423, end: 20080501
  2. FORTEO [Suspect]
     Dosage: UNK, UNKNOWN
     Route: 065
     Dates: start: 20080501
  3. COTENOLOL [Concomitant]
     Dosage: UNK, UNKNOWN
     Route: 048
  4. SPASMO-CANULASE [Concomitant]
     Dosage: UNK, UNKNOWN
     Route: 048
  5. VITAMIN D3 STREULI [Concomitant]
     Dosage: UNK, UNKNOWN
     Route: 048
  6. OXYCONTIN [Concomitant]
     Dosage: UNK, UNKNOWN
     Route: 048
  7. TILACTASE [Concomitant]
     Dosage: UNK, UNKNOWN
     Route: 048
  8. URSOCHOL [Concomitant]
     Dosage: UNK, UNKNOWN
     Route: 048
  9. REMERON [Concomitant]
     Dosage: UNK, UNKNOWN
     Route: 048
  10. TRAVATAN [Concomitant]
     Dosage: UNK, UNKNOWN
     Route: 047
  11. OXYNORM [Concomitant]
     Dosage: UNK, UNKNOWN
     Route: 048

REACTIONS (1)
  - ALOPECIA [None]
